FAERS Safety Report 17678538 (Version 1)
Quarter: 2020Q2

REPORT INFORMATION
  Report Type: Report from Study
  Country: ES (occurrence: ES)
  Receive Date: 20200417
  Receipt Date: 20200417
  Transmission Date: 20200714
  Serious: Yes (Hospitalization)
  Sender: FDA-Public Use
  Company Number: ES-TEVA-2020-ES-1224297

PATIENT
  Age: 75 Year
  Sex: Male

DRUGS (6)
  1. LOSARTAN (7157A) [Suspect]
     Active Substance: LOSARTAN
     Indication: CARDIAC FAILURE
     Dosage: 25 MG 1 DAYS
     Route: 048
     Dates: start: 20101216, end: 20170904
  2. SIMVASTATINA (1023A) [Concomitant]
     Active Substance: SIMVASTATIN
     Indication: DYSLIPIDAEMIA
     Dosage: 20 MG 1 DAYS
     Route: 048
     Dates: start: 20100226, end: 20170904
  3. OMEPRAZOL (2141A) [Concomitant]
     Active Substance: OMEPRAZOLE
     Dosage: 20 MG 1 DAYS
     Route: 048
     Dates: start: 20090903
  4. FUROSEMIDA (1615A) [Suspect]
     Active Substance: FUROSEMIDE
     Indication: CARDIAC FAILURE
     Dosage: 25 MG 1 DAYS
     Route: 048
     Dates: start: 20170516, end: 20170904
  5. BISOPROLOL (2328A) [Concomitant]
     Active Substance: BISOPROLOL
     Indication: CARDIAC FAILURE
     Dosage: 7.5 MG 1 DAYS
     Route: 048
     Dates: start: 20100226, end: 20170904
  6. CITALOPRAM [Concomitant]
     Active Substance: CITALOPRAM HYDROBROMIDE
     Dosage: 20 MG 1 DAYS
     Route: 048
     Dates: start: 20100226, end: 20170904

REACTIONS (1)
  - Acute kidney injury [Recovered/Resolved]

NARRATIVE: CASE EVENT DATE: 20170828
